FAERS Safety Report 8385978-6 (Version None)
Quarter: 2012Q2

REPORT INFORMATION
  Report Type: 
  Country: None (occurrence: None)
  Receive Date: 20120523
  Receipt Date: 20120510
  Transmission Date: 20120825
  Serious: Yes (Other)
  Sender: FDA-Public Use
  Company Number: 2012SP026481

PATIENT
  Age: 34 Year
  Sex: Female

DRUGS (7)
  1. CYTOXAN [Concomitant]
  2. BETAMETHASONE SODIUM PHOSPHATE [Suspect]
     Indication: PAIN IN EXTREMITY
  3. PREDNISONE TAB [Concomitant]
  4. METHYLPREDNISOLONE [Concomitant]
  5. AZATHIOPRINE [Concomitant]
  6. BETAMETHASONE DIPROPIONATE [Suspect]
     Indication: PAIN IN EXTREMITY
     Dosage: TOP
     Route: 061
  7. HYDROXYCHLOROQUINE SULFATE [Concomitant]

REACTIONS (1)
  - TENOSYNOVITIS [None]
